FAERS Safety Report 6673662-6 (Version None)
Quarter: 2010Q2

REPORT INFORMATION
  Report Type: 
  Country: None (occurrence: None)
  Receive Date: 20100408
  Receipt Date: 20100329
  Transmission Date: 20101027
  Serious: Yes (Life-Threatening, Hospitalization, Other)
  Sender: FDA-Public Use
  Company Number: FR-ABBOTT-10P-056-0635316-00

PATIENT
  Age: 20 Year
  Sex: Female

DRUGS (8)
  1. SEVOFLURANE [Suspect]
     Indication: ANAESTHESIA
     Dosage: ONCE
     Route: 055
     Dates: start: 20100309, end: 20100309
  2. CEFALOTINE [Suspect]
     Indication: DRUG USE FOR UNKNOWN INDICATION
     Route: 042
     Dates: start: 20100309, end: 20100309
  3. MIDAZOLAM HCL [Suspect]
     Indication: DRUG USE FOR UNKNOWN INDICATION
     Route: 042
     Dates: start: 20100309, end: 20100309
  4. PROPOFOL [Suspect]
     Indication: DRUG USE FOR UNKNOWN INDICATION
     Route: 042
     Dates: start: 20100309, end: 20100309
  5. FENTANYL [Suspect]
     Indication: DRUG USE FOR UNKNOWN INDICATION
     Dates: start: 20100309, end: 20100309
  6. DOPRAM [Suspect]
     Indication: DRUG USE FOR UNKNOWN INDICATION
     Dates: start: 20100309
  7. ADRENALIN [Concomitant]
     Indication: DRUG USE FOR UNKNOWN INDICATION
     Dates: end: 20100310
  8. TROPONINE [Concomitant]
     Indication: DRUG USE FOR UNKNOWN INDICATION
     Dosage: DOSE DECREASED
     Dates: end: 20100311

REACTIONS (5)
  - ASPIRATION [None]
  - CARDIAC FAILURE [None]
  - CIRCULATORY COLLAPSE [None]
  - EJECTION FRACTION DECREASED [None]
  - RESPIRATORY DISTRESS [None]
